FAERS Safety Report 14536465 (Version 4)
Quarter: 2018Q1

REPORT INFORMATION
  Report Type: Spontaneous
  Country: US (occurrence: US)
  Receive Date: 20180215
  Receipt Date: 20180320
  Transmission Date: 20180509
  Serious: No
  Sender: FDA-Public Use
  Company Number: US-PFIZER INC-2018065929

PATIENT
  Age: 75 Year
  Sex: Female
  Weight: 54.88 kg

DRUGS (1)
  1. IBRANCE [Suspect]
     Active Substance: PALBOCICLIB
     Indication: BREAST CANCER METASTATIC
     Dosage: 125 MG, CYCLIC (DAYS 1-21 Q 28 DAYS)
     Route: 048
     Dates: start: 20180129

REACTIONS (8)
  - Formication [Unknown]
  - Dry skin [Unknown]
  - Skin exfoliation [Unknown]
  - Diarrhoea [Unknown]
  - Neuropathy peripheral [Unknown]
  - Paraesthesia [Unknown]
  - Skin fissures [Unknown]
  - Alopecia [Unknown]

NARRATIVE: CASE EVENT DATE: 2018
